FAERS Safety Report 25350657 (Version 3)
Quarter: 2025Q3

REPORT INFORMATION
  Report Type: Spontaneous
  Country: JP (occurrence: JP)
  Receive Date: 20250523
  Receipt Date: 20250718
  Transmission Date: 20251020
  Serious: Yes (Death, Hospitalization, Other)
  Sender: Phathom Pharmaceuticals
  Company Number: JP-PHATHOM PHARMACEUTICALS INC.-2025PHT01224

PATIENT
  Age: 93 Year
  Sex: Female

DRUGS (3)
  1. VONOPRAZAN FUMARATE [Suspect]
     Active Substance: VONOPRAZAN FUMARATE
     Indication: Peptic ulcer
     Route: 048
     Dates: start: 20250421
  2. VONOPRAZAN FUMARATE [Suspect]
     Active Substance: VONOPRAZAN FUMARATE
     Indication: Gastric ulcer
     Route: 048
  3. CALONAL [Concomitant]
     Active Substance: ACETAMINOPHEN

REACTIONS (4)
  - Renal failure [Unknown]
  - Gastritis haemorrhagic [Fatal]
  - Small intestinal haemorrhage [Fatal]
  - Gastric mucosal lesion [Fatal]

NARRATIVE: CASE EVENT DATE: 20250505
